FAERS Safety Report 7660185 (Version 2)
Quarter: 2021Q2

REPORT INFORMATION
  Report Type: Spontaneous
  Country: GR (occurrence: GR)
  Receive Date: 20101108
  Receipt Date: 20210420
  Transmission Date: 20210717
  Serious: Yes (Other)
  Sender: FDA-Public Use
  Company Number: GR-PFIZER INC-2010141150

PATIENT
  Age: 57 Year
  Sex: Female

DRUGS (1)
  1. CABERGOLINE. [Suspect]
     Active Substance: CABERGOLINE
     Indication: HYPERADRENOCORTICISM
     Dosage: UNK

REACTIONS (2)
  - Hyperadrenocorticism [Unknown]
  - Drug ineffective [Unknown]
